FAERS Safety Report 25524772 (Version 1)
Quarter: 2025Q3

REPORT INFORMATION
  Report Type: Spontaneous
  Country: US (occurrence: US)
  Receive Date: 20250707
  Receipt Date: 20250707
  Transmission Date: 20251021
  Serious: No
  Sender: CHATTEM
  Company Number: US-OPELLA-2025OHG020584

PATIENT
  Age: 80 Year
  Sex: Female

DRUGS (3)
  1. ALLEGRA ALLERGY [Suspect]
     Active Substance: FEXOFENADINE HYDROCHLORIDE
     Indication: Product used for unknown indication
  2. MULTAQ [Suspect]
     Active Substance: DRONEDARONE
     Indication: Product used for unknown indication
  3. PEPCID [Suspect]
     Active Substance: FAMOTIDINE
     Indication: Product used for unknown indication

REACTIONS (3)
  - Palpitations [Unknown]
  - Dyspnoea [Unknown]
  - Drug interaction [Unknown]
